FAERS Safety Report 7080970-6 (Version None)
Quarter: 2010Q4

REPORT INFORMATION
  Report Type: 
  Country: None (occurrence: None)
  Receive Date: 20101102
  Receipt Date: 20101102
  Transmission Date: 20110411
  Serious: Yes (Other)
  Sender: FDA-Public Use
  Company Number: None

PATIENT
  Age: 71 Year
  Sex: Male
  Weight: 85.7298 kg

DRUGS (1)
  1. ALLENDRONATE SODIUM TABLETS USP 70 MG, 91.363 ALENDRONATE SODI AUROBIN [Suspect]
     Indication: OSTEOPOROSIS
     Dosage: ONE TABLET PER WEEK PO
     Route: 048
     Dates: start: 20101006, end: 20101026

REACTIONS (2)
  - GASTROOESOPHAGEAL REFLUX DISEASE [None]
  - PRODUCT SUBSTITUTION ISSUE [None]
